FAERS Safety Report 22303657 (Version 1)
Quarter: 2023Q2

REPORT INFORMATION
  Report Type: Spontaneous
  Country: FR (occurrence: FR)
  Receive Date: 20230510
  Receipt Date: 20230510
  Transmission Date: 20230722
  Serious: Yes (Hospitalization)
  Sender: FDA-Public Use
  Company Number: None

PATIENT
  Age: 71 Year
  Sex: Male
  Weight: 55 kg

DRUGS (1)
  1. ILARIS [Suspect]
     Active Substance: CANAKINUMAB
     Indication: Urticarial vasculitis
     Dosage: 150 MG (8 WEEK)
     Route: 058
     Dates: start: 202104, end: 20230408

REACTIONS (3)
  - Fungal sepsis [Not Recovered/Not Resolved]
  - Streptococcal sepsis [Not Recovered/Not Resolved]
  - Bladder necrosis [Not Recovered/Not Resolved]

NARRATIVE: CASE EVENT DATE: 20230407
